FAERS Safety Report 19621402 (Version 5)
Quarter: 2022Q2

REPORT INFORMATION
  Report Type: Report from Study
  Country: US (occurrence: US)
  Receive Date: 20210728
  Receipt Date: 20220503
  Transmission Date: 20220721
  Serious: Yes (Hospitalization)
  Sender: FDA-Public Use
  Company Number: US-KARYOPHARM-2021KPT000936

PATIENT
  Age: 40 Year
  Sex: Female
  Weight: 99.7 kg

DRUGS (17)
  1. SELINEXOR [Suspect]
     Active Substance: SELINEXOR
     Indication: Glioblastoma multiforme
     Dosage: 60 MG, WEEKLY
     Route: 048
     Dates: start: 20210330
  2. TEMOZOLOMIDE [Suspect]
     Active Substance: TEMOZOLOMIDE
     Indication: Glioblastoma multiforme
     Dosage: 75 MG/M2, QD
     Route: 048
     Dates: start: 20210330, end: 20210709
  3. TEMOZOLOMIDE [Suspect]
     Active Substance: TEMOZOLOMIDE
     Dosage: 200 MG/M2, QD FOR 5 DAYS OUT OF A 28-DAY CYCLE
     Route: 048
     Dates: start: 20210711
  4. ONDANSETRON [Concomitant]
     Active Substance: ONDANSETRON
     Indication: Nausea
     Dosage: 4 MG, Q8H
     Route: 048
     Dates: start: 20210324
  5. PROCHLORPERAZINE [Concomitant]
     Active Substance: PROCHLORPERAZINE
     Indication: Nausea
     Dosage: 10 MG, Q6H
     Route: 048
     Dates: start: 20210609
  6. ALPRAZOLAM [Concomitant]
     Active Substance: ALPRAZOLAM
     Indication: Insomnia
     Dosage: 0.25 MG, QD
     Route: 048
     Dates: start: 20200616
  7. CYCLOBENZAPRINE [Concomitant]
     Active Substance: CYCLOBENZAPRINE
     Indication: Tremor
     Dosage: 10 MG, TID
     Route: 048
     Dates: start: 20200601
  8. ESCITALOPRAM [Concomitant]
     Active Substance: ESCITALOPRAM OXALATE
     Indication: Anxiety
     Dosage: 10 MG, QD
     Route: 048
     Dates: start: 20201026
  9. GABAPENTIN [Concomitant]
     Active Substance: GABAPENTIN
     Indication: Radiculopathy
     Dosage: 300 MG, TID
     Route: 048
     Dates: start: 20201228
  10. HYDROCODONE BITARTRATE AND ACETAMINOPHEN [Concomitant]
     Active Substance: ACETAMINOPHEN\HYDROCODONE BITARTRATE
     Indication: Spondylolisthesis
     Dosage: 325 MG, PRN
     Route: 048
     Dates: start: 20210509
  11. IBUPROFEN [Concomitant]
     Active Substance: IBUPROFEN
     Indication: Spondylolisthesis
     Dosage: 600 MG, Q6H
     Route: 048
     Dates: start: 20190219
  12. OLANZAPINE [Concomitant]
     Active Substance: OLANZAPINE
     Indication: Nausea
     Dosage: 2.5 MG, QD
     Route: 048
     Dates: start: 20210324
  13. HYDROXYCHLOROQUINE SULFATE [Concomitant]
     Active Substance: HYDROXYCHLOROQUINE SULFATE
     Indication: Autoimmune disorder
     Dosage: 200 MG, BID
     Route: 048
     Dates: start: 20180828
  14. PANTOPRAZOLE [Concomitant]
     Active Substance: PANTOPRAZOLE
     Indication: Irritable bowel syndrome
     Dosage: 1 DOSAGE FORM, QD
     Route: 048
     Dates: start: 20210322
  15. REGLAN [Concomitant]
     Active Substance: METOCLOPRAMIDE HYDROCHLORIDE
     Indication: Nausea
     Dosage: 10 MG, QID
     Route: 048
     Dates: start: 20210702
  16. REGLAN [Concomitant]
     Active Substance: METOCLOPRAMIDE HYDROCHLORIDE
     Indication: Vomiting
  17. REGLAN [Concomitant]
     Active Substance: METOCLOPRAMIDE HYDROCHLORIDE
     Indication: Diarrhoea

REACTIONS (3)
  - Nausea [Recovered/Resolved]
  - Vomiting [Recovered/Resolved]
  - Diarrhoea [Recovered/Resolved]

NARRATIVE: CASE EVENT DATE: 20210709
